FAERS Safety Report 24528822 (Version 1)
Quarter: 2024Q4

REPORT INFORMATION
  Report Type: Spontaneous
  Country: US (occurrence: US)
  Receive Date: 20241021
  Receipt Date: 20241021
  Transmission Date: 20250114
  Serious: Yes (Other)
  Sender: APOTEX
  Company Number: US-APOTEX-2024AP012038

PATIENT
  Age: 33 Year
  Sex: Female

DRUGS (1)
  1. TESTOSTERONE [Suspect]
     Active Substance: TESTOSTERONE
     Indication: Product used for unknown indication
     Dosage: UNK
     Route: 065
     Dates: start: 2009

REACTIONS (2)
  - Idiopathic intracranial hypertension [Recovering/Resolving]
  - Cerebrospinal fluid leakage [Recovering/Resolving]
